FAERS Safety Report 6095816-2 (Version None)
Quarter: 2009Q1

REPORT INFORMATION
  Report Type: 
  Country: None (occurrence: None)
  Receive Date: 20090227
  Receipt Date: 20080619
  Transmission Date: 20090719
  Serious: No
  Sender: FDA-Public Use
  Company Number: A0733905A

PATIENT

DRUGS (2)
  1. LAMICTAL [Suspect]
     Indication: DRUG USE FOR UNKNOWN INDICATION
     Route: 048
  2. NO CONCURRENT MEDICATION [Concomitant]

REACTIONS (4)
  - ENAMEL ANOMALY [None]
  - GINGIVAL RECESSION [None]
  - LOOSE TOOTH [None]
  - TOOTH LOSS [None]
